FAERS Safety Report 23621978 (Version 1)
Quarter: 2024Q1

REPORT INFORMATION
  Report Type: Spontaneous
  Country: US (occurrence: None)
  Receive Date: 20240311
  Receipt Date: 20240311
  Transmission Date: 20240410
  Serious: Yes (Death, Hospitalization)
  Sender: FDA-Public Use
  Company Number: None

PATIENT
  Age: 85 Year
  Sex: Female
  Weight: 60 kg

DRUGS (1)
  1. RAVULIZUMAB [Suspect]
     Active Substance: RAVULIZUMAB
     Indication: Paroxysmal nocturnal haemoglobinuria
     Dosage: OTHER FREQUENCY : EVERY 8 WEEKS;?
     Route: 042

REACTIONS (4)
  - Haemoptysis [None]
  - Pulseless electrical activity [None]
  - Blood culture positive [None]
  - Meningococcal infection [None]

NARRATIVE: CASE EVENT DATE: 20240202
